FAERS Safety Report 15688830 (Version 1)
Quarter: 2018Q4

REPORT INFORMATION
  Report Type: Report from Study
  Country: US (occurrence: US)
  Receive Date: 20181205
  Receipt Date: 20181205
  Transmission Date: 20190205
  Serious: Yes (Other)
  Sender: FDA-Public Use
  Company Number: US-BIOGEN-2018BI00667702

PATIENT
  Sex: Female

DRUGS (1)
  1. TECFIDERA [Suspect]
     Active Substance: DIMETHYL FUMARATE
     Indication: MULTIPLE SCLEROSIS
     Dosage: MAINTENANCE DOSE
     Route: 048
     Dates: start: 2015

REACTIONS (8)
  - Neoplasm malignant [Unknown]
  - Malaise [Unknown]
  - Pruritus [Unknown]
  - Erythema [Unknown]
  - Depression [Unknown]
  - Fall [Recovered/Resolved]
  - Flushing [Unknown]
  - Diarrhoea [Unknown]
